FAERS Safety Report 19143674 (Version 1)
Quarter: 2021Q2

REPORT INFORMATION
  Report Type: Spontaneous
  Country: US (occurrence: US)
  Receive Date: 20210415
  Receipt Date: 20210415
  Transmission Date: 20210717
  Serious: No
  Sender: FDA-Public Use
  Company Number: US-AMGEN-USASP2020214101

PATIENT
  Age: 64 Year
  Sex: Female

DRUGS (9)
  1. VALSARTAN AND HYDROCHLOROTHIAZIDE [Concomitant]
     Active Substance: HYDROCHLOROTHIAZIDE\VALSARTAN
     Dosage: UNK, (320?25 MG)
  2. ENBREL [Suspect]
     Active Substance: ETANERCEPT
     Indication: RHEUMATOID ARTHRITIS
     Dosage: 50 MILLIGRAM, QWK
     Route: 058
     Dates: start: 20190410, end: 202010
  3. METHOTREXATE. [Concomitant]
     Active Substance: METHOTREXATE
     Dosage: UNK, (50 MG/2 ML)
  4. NABUMETONE. [Concomitant]
     Active Substance: NABUMETONE
     Dosage: 500 MILLIGRAM
  5. RESTASIS [Concomitant]
     Active Substance: CYCLOSPORINE
     Dosage: 0.05 PERCENT
  6. ENBREL [Suspect]
     Active Substance: ETANERCEPT
     Dosage: 50 MILLIGRAM, QWK
     Route: 058
     Dates: start: 2020
  7. HYDROXYZINE [Concomitant]
     Active Substance: HYDROXYZINE HYDROCHLORIDE
     Dosage: 20 MILLIGRAM
  8. FOLIC ACID. [Concomitant]
     Active Substance: FOLIC ACID
     Dosage: 1 MILLIGRAM
  9. TRAMADOL HCL [Concomitant]
     Active Substance: TRAMADOL HYDROCHLORIDE
     Dosage: UNK

REACTIONS (1)
  - Product dose omission issue [Unknown]

NARRATIVE: CASE EVENT DATE: 202010
